FAERS Safety Report 8023326-1 (Version None)
Quarter: 2012Q1

REPORT INFORMATION
  Report Type: 
  Country: None (occurrence: None)
  Receive Date: 20120104
  Receipt Date: 20120102
  Transmission Date: 20120608
  Serious: Yes (Life-Threatening)
  Sender: FDA-Public Use
  Company Number: FR-ROCHE-1026951

PATIENT
  Sex: Female

DRUGS (12)
  1. ZOFRAN [Concomitant]
  2. NEULASTA [Concomitant]
     Dates: start: 20110716
  3. CYTARABINE [Suspect]
     Indication: MANTLE CELL LYMPHOMA
     Route: 042
     Dates: start: 20111117
  4. DEXAMETHASONE [Suspect]
     Indication: MANTLE CELL LYMPHOMA
  5. CARMUSTINE [Suspect]
     Indication: MANTLE CELL LYMPHOMA
     Dates: start: 20111115, end: 20111116
  6. ETOPOSIDE [Suspect]
     Indication: MANTLE CELL LYMPHOMA
     Dates: start: 20111117, end: 20111120
  7. GRANOCYTE [Concomitant]
     Dosage: 34 MIU/ML
     Dates: start: 20110912
  8. MABTHERA [Suspect]
     Indication: MANTLE CELL LYMPHOMA
     Route: 042
     Dates: start: 20110714, end: 20111115
  9. CYTARABINE [Suspect]
     Dates: start: 20110712
  10. MELPHALAN [Suspect]
     Indication: MANTLE CELL LYMPHOMA
     Route: 042
     Dates: start: 20111121, end: 20111121
  11. NEXIUM [Concomitant]
     Dates: start: 20111001
  12. CISPLATIN [Suspect]
     Indication: MANTLE CELL LYMPHOMA
     Dates: start: 20110711

REACTIONS (3)
  - CARDIAC FAILURE [None]
  - EJECTION FRACTION DECREASED [None]
  - ACUTE PULMONARY OEDEMA [None]
